FAERS Safety Report 9632116 (Version 3)
Quarter: 2014Q2

REPORT INFORMATION
  Report Type: Spontaneous
  Country: US (occurrence: US)
  Receive Date: 20131018
  Receipt Date: 20140505
  Transmission Date: 20141212
  Serious: Yes (Death)
  Sender: FDA-Public Use
  Company Number: US-PFIZER INC-2013297843

PATIENT
  Age: 49 Year
  Sex: Female

DRUGS (22)
  1. RAPAMUNE [Suspect]
     Indication: HEART TRANSPLANT
     Dosage: 3 MG, 1X/DAY
  2. ACETAMINOPHEN [Concomitant]
     Dosage: 325 MG, AS NEEDED (TAKE 325 MG, EVERY 6 HOURS AS NEEDED)
     Route: 048
  3. ALBUTEROL [Concomitant]
     Indication: WHEEZING
     Dosage: 90 UG, EVERY 4 HRS (INHALE 2 PUFFS INTO THE LUNGS EVERY 4HRS AS NEEDED FOR WHEEZING)
     Route: 055
  4. AMBIEN [Concomitant]
     Dosage: 5 MG, 1X/DAY (1 TABLET AT BEDTIME AS NEEDED)
     Route: 048
  5. AMOXICILLIN [Concomitant]
     Dosage: 500 MG, 3X/DAY (TAKE 500 MG BY MOUTH 3 TIMES DAILY. 1 HR PRIOR TO DENTAL PROCEDURE)
     Route: 048
  6. ASPIRINA [Concomitant]
     Dosage: 81 MG, UNK (81 MG PO CHEW, 1 TABLET ON MON WED FRI)
     Route: 048
  7. BUPROPION [Concomitant]
     Dosage: 150 MG, 2X/DAY
     Route: 048
  8. CALCIUM [Concomitant]
     Dosage: 600 MG, 2X/DAY
     Route: 048
  9. KLONOPIN [Concomitant]
     Dosage: 0.5 MG, AS NEEDED (TAKE 0.5 MG BY MOUTH EVERY 2 HOURS AS NEEDED, INDICATIONS: PRN TAKE HALF A PILL)
     Route: 048
  10. SYNTHROID [Concomitant]
     Dosage: 100 UG, DAILY (TAKE 1 TAB BY MOUTH DAILY)
     Route: 048
  11. LIDOCAINE HYDROCHLORIDE/PRILOCAINE HYDROCHLORIDE [Concomitant]
     Dosage: UNK
     Route: 061
  12. CITRUCEL [Concomitant]
     Indication: FLATULENCE
     Dosage: 500 MG, 2X/DAY (AS NEEDED FOR GAS)
     Route: 048
  13. CITRUCEL [Concomitant]
     Indication: LAXATIVE SUPPORTIVE CARE
  14. CELLCEPT [Concomitant]
     Dosage: 1000 MG, DAILY ((TAKE 4 250MG CAPSULES TWICE A DAY))
     Route: 048
  15. PANTOPRAZOLE [Concomitant]
     Dosage: 40 MG, DAILY (TAKE 1 TABLET DAILY)
     Route: 048
  16. PREDNISONE [Concomitant]
     Dosage: 5 MG, 2X/DAY
     Route: 048
  17. SUDAFED [Concomitant]
     Dosage: 30 MG, UNK
     Route: 048
  18. SUDAFED [Concomitant]
     Dosage: 4 DF, AS NEEDED
  19. SIMETHICONE [Concomitant]
     Indication: FLATULENCE
     Dosage: 125 MG, EVERY 4 HRS (AS NEEDED FOR GAS)
     Route: 048
  20. TUMS [Concomitant]
     Dosage: 500 MG, 2X/DAY (1 2XDAILY PRN)
     Route: 048
  21. VITAMIN D2 [Concomitant]
     Dosage: 50000 IU, WEEKLY
     Route: 048
  22. ZOLOFT [Concomitant]
     Dosage: 200 MG, DAILY
     Route: 048

REACTIONS (2)
  - Cholangiocarcinoma [Fatal]
  - Off label use [Unknown]
